FAERS Safety Report 9075510 (Version 1)
Quarter: 2013Q1

REPORT INFORMATION
  Report Type: Report from Study
  Country: US (occurrence: US)
  Receive Date: 20130131
  Receipt Date: 20130131
  Transmission Date: 20140127
  Serious: No
  Sender: FDA-Public Use
  Company Number: US-ABBOTT-12P-163-1004981-00

PATIENT
  Age: 23 None
  Sex: Male
  Weight: 68.1 kg

DRUGS (4)
  1. HUMIRA [Suspect]
     Indication: UVEITIS
     Route: 058
     Dates: start: 20121028
  2. CELLCEPT [Concomitant]
     Indication: UVEITIS
  3. PREDNISONE [Concomitant]
     Indication: UVEITIS
  4. CYCLOSPORINE [Concomitant]
     Indication: PRODUCT USED FOR UNKNOWN INDICATION
     Dosage: TAPERING DOSES

REACTIONS (1)
  - Off label use [Not Recovered/Not Resolved]
